FAERS Safety Report 7961378-5 (Version None)
Quarter: 2011Q4

REPORT INFORMATION
  Report Type: 
  Country: None (occurrence: None)
  Receive Date: 20111207
  Receipt Date: 20111202
  Transmission Date: 20120403
  Serious: Yes (Other)
  Sender: FDA-Public Use
  Company Number: GB-B.I. PHARMACEUTICALS,INC./RIDGEFIELD-2011-UK-01322UK

PATIENT
  Age: 62 Year
  Sex: Female

DRUGS (1)
  1. SPIRIVA [Suspect]
     Indication: CHRONIC OBSTRUCTIVE PULMONARY DISEASE
     Dosage: 1 RT
     Route: 055
     Dates: start: 20111026, end: 20111028

REACTIONS (5)
  - WHEEZING [None]
  - LOWER RESPIRATORY TRACT INFECTION [None]
  - CHRONIC OBSTRUCTIVE PULMONARY DISEASE [None]
  - PHARYNGITIS [None]
  - FATIGUE [None]
